FAERS Safety Report 4752373-8 (Version None)
Quarter: 2005Q3

REPORT INFORMATION
  Report Type: 
  Country: None (occurrence: None)
  Receive Date: 20050823
  Receipt Date: 20050810
  Transmission Date: 20060218
  Serious: Yes (Hospitalization)
  Sender: FDA-Public Use
  Company Number: 2005096150

PATIENT
  Age: 71 Year
  Sex: Female
  Weight: 55 kg

DRUGS (14)
  1. SOLU-MEDROL [Suspect]
     Indication: ILL-DEFINED DISORDER
     Dosage: 500 ML, INTRAVENOUS
     Route: 042
     Dates: end: 20050609
  2. INSULIN HUMAN (INSULIN HUMAN) [Concomitant]
  3. METALCAPTASE (PENICILLAMINE) [Concomitant]
  4. MEDICON (DEXTROMETHORPHAN HYDROBROMIDE) [Concomitant]
  5. JUVELA NICOTINATE (TOCOPHERYL NICOTINATE) [Concomitant]
  6. MUCOSTA (REBAMIPIDE) [Concomitant]
  7. DORNER (BERAPROST SODIUM) [Concomitant]
  8. FAMOTIDINE [Concomitant]
  9. PREDNISOLONE [Concomitant]
  10. ALDACTONE [Concomitant]
  11. CLINORIL [Concomitant]
  12. SLOW-K [Concomitant]
  13. EPADEL (ETHYL ICOSAPENTATE) [Concomitant]
  14. MAGNESIUM OXIDE (MAGNESIUM OXIDE) [Concomitant]

REACTIONS (10)
  - ACTIVITIES OF DAILY LIVING IMPAIRED [None]
  - ARTERIOVENOUS FISTULA [None]
  - ASTHENIA [None]
  - COORDINATION ABNORMAL [None]
  - HYPOKALAEMIA [None]
  - IMPAIRED SELF-CARE [None]
  - MUSCULAR WEAKNESS [None]
  - MUSCULOSKELETAL STIFFNESS [None]
  - NUCLEAR MAGNETIC RESONANCE IMAGING ABNORMAL [None]
  - QUADRIPLEGIA [None]
